FAERS Safety Report 8917271 (Version 3)
Quarter: 2014Q1

REPORT INFORMATION
  Report Type: Spontaneous
  Country: US (occurrence: US)
  Receive Date: 20121120
  Receipt Date: 20140317
  Transmission Date: 20141002
  Serious: Yes (Hospitalization, Other)
  Sender: FDA-Public Use
  Company Number: US-BAYER-2012-120068

PATIENT
  Age: 20 Year
  Sex: Female

DRUGS (15)
  1. YAZ [Suspect]
  2. YASMIN [Suspect]
  3. OCELLA [Suspect]
  4. AMNESTEEM [Concomitant]
     Dosage: 40 MG, UNK
     Dates: start: 20100519, end: 20100723
  5. CITALOPRAM [Concomitant]
     Dosage: 20 MG, UNK
     Dates: start: 20100616, end: 20100720
  6. AZITHROMYCIN [Concomitant]
     Dosage: 250 MG, UNK
     Dates: start: 20100701
  7. METHYLPREDNISOLONE [Concomitant]
     Dosage: 4 MG, UNK
     Dates: start: 20100701
  8. BISACODYL [Concomitant]
  9. CELEXA [Concomitant]
  10. COLACE [Concomitant]
  11. LO/OVRAL [Concomitant]
  12. PRILOSEC [Concomitant]
  13. PERCOCET [Concomitant]
  14. MIRALAX [Concomitant]
  15. PHENERGAN [Concomitant]

REACTIONS (9)
  - Pancreatitis [None]
  - Cholecystitis chronic [None]
  - Gallbladder injury [None]
  - Pain [None]
  - Injury [None]
  - General physical health deterioration [None]
  - Anxiety [None]
  - Emotional distress [None]
  - Pain [None]
